FAERS Safety Report 5074672-5 (Version None)
Quarter: 2006Q3

REPORT INFORMATION
  Report Type: 
  Country: None (occurrence: None)
  Receive Date: 20060803
  Receipt Date: 20060721
  Transmission Date: 20061208
  Serious: Yes (Hospitalization, Disabling, Other)
  Sender: FDA-Public Use
  Company Number: 2006093124

PATIENT
  Age: 87 Year
  Sex: Female
  Weight: 63.05 kg

DRUGS (1)
  1. BEXTRA [Suspect]
     Indication: ARTHRITIS
     Dosage: 20 MG (20 MG, 1 IN 1 D)
     Dates: start: 20040714, end: 20040801

REACTIONS (7)
  - ASTHENIA [None]
  - BRADYCARDIA [None]
  - CORONARY ARTERY DISEASE [None]
  - DIZZINESS [None]
  - GAIT DISTURBANCE [None]
  - LOSS OF CONSCIOUSNESS [None]
  - SYNCOPE [None]
